FAERS Safety Report 14303599 (Version 1)
Quarter: 2017Q4

REPORT INFORMATION
  Report Type: Spontaneous
  Country: PR (occurrence: PR)
  Receive Date: 20171219
  Receipt Date: 20171219
  Transmission Date: 20180321
  Serious: No
  Sender: FDA-Public Use
  Company Number: None

PATIENT
  Age: 95 Year
  Sex: Female
  Weight: 60.75 kg

DRUGS (1)
  1. MOXIFLOXACIN. [Suspect]
     Active Substance: MOXIFLOXACIN
     Indication: BRONCHITIS
     Route: 042
     Dates: start: 20171209, end: 20171212

REACTIONS (3)
  - Erythema [None]
  - Pruritus [None]
  - Discomfort [None]

NARRATIVE: CASE EVENT DATE: 20171212
